FAERS Safety Report 10994892 (Version 1)
Quarter: 2015Q2

REPORT INFORMATION
  Report Type: Spontaneous
  Country: US (occurrence: None)
  Receive Date: 20150406
  Receipt Date: 20150406
  Transmission Date: 20150821
  Serious: No
  Sender: FDA-Public Use
  Company Number: None

PATIENT
  Age: 74 Year
  Sex: Female
  Weight: 75.3 kg

DRUGS (9)
  1. ASPIRIN. [Concomitant]
     Active Substance: ASPIRIN
  2. CALCIUM ANTACID [Concomitant]
     Active Substance: CALCIUM CARBONATE
  3. HCTZ [Concomitant]
     Active Substance: HYDROCHLOROTHIAZIDE
  4. COQ10 [Concomitant]
     Active Substance: UBIDECARENONE
  5. SYNTHROID [Concomitant]
     Active Substance: LEVOTHYROXINE SODIUM
  6. ESTRADIOL PATCH 0.0375MG MYLAN [Concomitant]
     Active Substance: ESTRADIOL
  7. PEPCID [Concomitant]
     Active Substance: FAMOTIDINE
  8. VITAMINS/MINERAL W/O IRON OR IODINE [Concomitant]
  9. FLUCONAZOLE. [Suspect]
     Active Substance: FLUCONAZOLE
     Indication: VULVOVAGINAL MYCOTIC INFECTION
     Dosage: 1, 3 DAYS LATER, TAKEN BY MOUTH
     Route: 048
     Dates: start: 20150313

REACTIONS (7)
  - Product formulation issue [None]
  - Nausea [None]
  - Diarrhoea [None]
  - Malaise [None]
  - Product quality issue [None]
  - Dizziness [None]
  - Product substitution issue [None]

NARRATIVE: CASE EVENT DATE: 20150313
